FAERS Safety Report 5660297-7 (Version None)
Quarter: 2008Q1

REPORT INFORMATION
  Report Type: 
  Country: None (occurrence: None)
  Receive Date: 20080306
  Receipt Date: 20061031
  Transmission Date: 20080703
  Serious: Yes (Other)
  Sender: FDA-Public Use
  Company Number: GBPFL-S-20080008

PATIENT

DRUGS (2)
  1. NAVELBINE [Suspect]
  2. CAPECITABINE [Suspect]

REACTIONS (6)
  - ANOREXIA [None]
  - DIARRHOEA HAEMORRHAGIC [None]
  - NAUSEA [None]
  - OEDEMA [None]
  - PLATELET COUNT DECREASED [None]
  - VOMITING [None]
